FAERS Safety Report 12263094 (Version 1)
Quarter: 2016Q2

REPORT INFORMATION
  Report Type: Spontaneous
  Country: US (occurrence: US)
  Receive Date: 20160413
  Receipt Date: 20160413
  Transmission Date: 20160815
  Serious: No
  Sender: FDA-Public Use
  Company Number: US-ACTAVIS-2015-16760

PATIENT
  Sex: Male

DRUGS (3)
  1. PERMETHRIN (AMALLC) [Suspect]
     Active Substance: PERMETHRIN
     Dosage: UNK, SINGLE
     Route: 061
     Dates: start: 20150729, end: 20150729
  2. PERMETHRIN (AMALLC) [Suspect]
     Active Substance: PERMETHRIN
     Dosage: UNK, SINGLE
     Route: 061
     Dates: start: 20150803, end: 20150803
  3. PERMETHRIN (AMALLC) [Suspect]
     Active Substance: PERMETHRIN
     Indication: LICE INFESTATION
     Dosage: UNK, SINGLE
     Route: 061
     Dates: start: 20150805, end: 20150805

REACTIONS (1)
  - Drug ineffective [Unknown]
